FAERS Safety Report 23956729 (Version 1)
Quarter: 2024Q2

REPORT INFORMATION
  Report Type: Spontaneous
  Country: US (occurrence: None)
  Receive Date: 20240608
  Receipt Date: 20240608
  Transmission Date: 20240716
  Serious: Yes (Hospitalization)
  Sender: FDA-Public Use
  Company Number: None

PATIENT
  Age: 65 Year
  Sex: Male
  Weight: 74 kg

DRUGS (1)
  1. CARVEDILOL [Suspect]
     Active Substance: CARVEDILOL
     Indication: Hypertension
     Dosage: FREQUENCY : TWICE A DAY;?
     Route: 048
     Dates: start: 20240314, end: 20240328

REACTIONS (5)
  - Atrioventricular block [None]
  - Hyperkalaemia [None]
  - Therapy interrupted [None]
  - Dyspnoea [None]
  - Metabolic acidosis [None]

NARRATIVE: CASE EVENT DATE: 20240328
